FAERS Safety Report 6132335-9 (Version None)
Quarter: 2009Q1

REPORT INFORMATION
  Report Type: 
  Country: None (occurrence: None)
  Receive Date: 20090325
  Receipt Date: 20090318
  Transmission Date: 20090719
  Serious: Yes (Other)
  Sender: FDA-Public Use
  Company Number: US-BAYER-200910103BCC

PATIENT
  Age: 51 Year
  Sex: Female
  Weight: 48 kg

DRUGS (5)
  1. ALEVE (CAPLET) [Suspect]
     Indication: HEADACHE
     Dosage: TOTAL DAILY DOSE: 220 MG  UNIT DOSE: 220 MG
     Route: 048
     Dates: start: 20090107, end: 20090107
  2. ASPIRIN [Suspect]
     Indication: DRUG USE FOR UNKNOWN INDICATION
     Route: 048
  3. ANAPROX [Suspect]
     Indication: DRUG USE FOR UNKNOWN INDICATION
  4. TYLENOL [Concomitant]
     Indication: HEADACHE
  5. ADVIL LIQUI-GELS [Concomitant]
     Indication: HEADACHE

REACTIONS (15)
  - ABDOMINAL DISCOMFORT [None]
  - ANAPHYLACTIC REACTION [None]
  - ASTHENIA [None]
  - BLOOD PRESSURE DECREASED [None]
  - DIZZINESS [None]
  - DYSPNOEA [None]
  - FEELING COLD [None]
  - FEELING HOT [None]
  - GENERALISED ERYTHEMA [None]
  - HYPERHIDROSIS [None]
  - MALAISE [None]
  - PRURITUS [None]
  - SPEECH DISORDER [None]
  - THROAT TIGHTNESS [None]
  - TREMOR [None]
